FAERS Safety Report 5755765-3 (Version None)
Quarter: 2008Q2

REPORT INFORMATION
  Report Type: 
  Country: None (occurrence: None)
  Receive Date: 20080530
  Receipt Date: 20080530
  Transmission Date: 20081010
  Serious: Yes (Hospitalization)
  Sender: FDA-Public Use
  Company Number: None

PATIENT
  Sex: Male
  Weight: 70 kg

DRUGS (1)
  1. CYTARABINE [Suspect]
     Dosage: 33840 MG
     Dates: end: 20080505

REACTIONS (16)
  - BLOOD CREATININE INCREASED [None]
  - BLOOD URINE PRESENT [None]
  - CATHETER RELATED COMPLICATION [None]
  - CORYNEBACTERIUM INFECTION [None]
  - DEEP VEIN THROMBOSIS [None]
  - ERYTHEMA [None]
  - HEADACHE [None]
  - HYPOTENSION [None]
  - NAUSEA [None]
  - OEDEMA PERIPHERAL [None]
  - PROTEIN URINE PRESENT [None]
  - THROMBOCYTOPENIA [None]
  - VOMITING [None]
  - WHITE BLOOD CELLS URINE POSITIVE [None]
  - WOUND INFECTION FUNGAL [None]
  - WOUND INFECTION STAPHYLOCOCCAL [None]
